FAERS Safety Report 20431500 (Version 4)
Quarter: 2022Q1

REPORT INFORMATION
  Report Type: Spontaneous
  Country: TR (occurrence: TR)
  Receive Date: 20220204
  Receipt Date: 20220325
  Transmission Date: 20220424
  Serious: Yes (Death, Other)
  Sender: FDA-Public Use
  Company Number: TR-PFIZER INC-202200153992

PATIENT
  Age: 92 Year
  Sex: Female

DRUGS (12)
  1. MEROPENEM [Suspect]
     Active Substance: MEROPENEM
     Indication: Pneumonia acinetobacter
     Dosage: UNK
  2. MEROPENEM [Suspect]
     Active Substance: MEROPENEM
     Indication: Pneumonia pseudomonal
  3. MICAFUNGIN [Suspect]
     Active Substance: MICAFUNGIN
     Indication: Enterococcal bacteraemia
     Dosage: UNK
  4. MICAFUNGIN [Suspect]
     Active Substance: MICAFUNGIN
     Indication: Systemic candida
  5. TEICOPLANIN [Suspect]
     Active Substance: TEICOPLANIN
     Indication: Enterococcal bacteraemia
     Dosage: UNK
  6. TEICOPLANIN [Suspect]
     Active Substance: TEICOPLANIN
     Indication: Systemic candida
  7. PIPERACILLIN SODIUM\TAZOBACTAM SODIUM [Concomitant]
     Active Substance: PIPERACILLIN SODIUM\TAZOBACTAM SODIUM
     Indication: Pneumonia
     Dosage: UNK
  8. LEVOFLOXACIN [Concomitant]
     Active Substance: LEVOFLOXACIN
     Indication: Pneumonia
  9. POLYMYXIN B [Concomitant]
     Active Substance: POLYMYXIN B
     Indication: Pneumonia acinetobacter
     Dosage: UNK
     Route: 042
  10. COLISTIN [Concomitant]
     Active Substance: COLISTIN
     Indication: Pneumonia acinetobacter
     Route: 055
  11. COLISTIN [Concomitant]
     Active Substance: COLISTIN
     Indication: Pneumonia pseudomonal
  12. AVIBACTAM SODIUM\CEFTAZIDIME [Concomitant]
     Active Substance: AVIBACTAM SODIUM\CEFTAZIDIME
     Indication: Pneumonia klebsiella
     Dosage: UNK
     Dates: start: 20210712, end: 20210725

REACTIONS (1)
  - Cardiac arrest [Fatal]

NARRATIVE: CASE EVENT DATE: 20210822
